FAERS Safety Report 20869710 (Version 1)
Quarter: 2022Q2

REPORT INFORMATION
  Report Type: Spontaneous
  Country: CN (occurrence: CN)
  Receive Date: 20220525
  Receipt Date: 20220525
  Transmission Date: 20220721
  Serious: Yes (Other)
  Sender: FDA-Public Use
  Company Number: CN-BEH-2022145563

PATIENT
  Age: 64 Year
  Sex: Female
  Weight: 67 kg

DRUGS (1)
  1. ALBURX [Suspect]
     Active Substance: ALBUMIN HUMAN
     Indication: Nephrotic syndrome
     Dosage: 50 MILLILITER, QD
     Route: 041
     Dates: start: 20220502, end: 20220507

REACTIONS (12)
  - Temperature intolerance [Recovered/Resolved]
  - Chills [Recovered/Resolved]
  - Tremor [Recovering/Resolving]
  - Dry mouth [Recovering/Resolving]
  - Blood pressure increased [Recovering/Resolving]
  - Sinus tachycardia [Recovering/Resolving]
  - Heart rate increased [Recovering/Resolving]
  - Stress [Recovering/Resolving]
  - Cyanosis [Recovering/Resolving]
  - Breath sounds abnormal [Recovering/Resolving]
  - Oedema peripheral [Recovering/Resolving]
  - Infusion related reaction [Recovering/Resolving]

NARRATIVE: CASE EVENT DATE: 20220507
